FAERS Safety Report 10406836 (Version 1)
Quarter: 2014Q3

REPORT INFORMATION
  Report Type: Spontaneous
  Country: BR (occurrence: BR)
  Receive Date: 20140825
  Receipt Date: 20140825
  Transmission Date: 20150326
  Serious: Yes (Death, Other)
  Sender: FDA-Public Use
  Company Number: BR-VERTEX PHARMACEUTICALS INC-2014-003537

PATIENT
  Age: 64 Year
  Sex: Male

DRUGS (1)
  1. INCIVO [Suspect]
     Active Substance: TELAPREVIR
     Indication: HEPATITIS C
     Dosage: UNK
     Route: 048
     Dates: start: 201407

REACTIONS (4)
  - Hepatic cirrhosis [Unknown]
  - Encephalopathy [Unknown]
  - Sepsis [Fatal]
  - Ascites [Unknown]

NARRATIVE: CASE EVENT DATE: 2014
